FAERS Safety Report 25434999 (Version 2)
Quarter: 2025Q2

REPORT INFORMATION
  Report Type: Spontaneous
  Country: AU (occurrence: AU)
  Receive Date: 20250613
  Receipt Date: 20250618
  Transmission Date: 20250716
  Serious: Yes (Life-Threatening, Hospitalization, Other)
  Sender: PURDUE
  Company Number: AU-PURDUE PHARMA-USA-2025-0318116

PATIENT
  Age: 49 Year
  Sex: Female

DRUGS (5)
  1. OXYCODONE HYDROCHLORIDE [Suspect]
     Active Substance: OXYCODONE HYDROCHLORIDE
     Indication: Migraine
     Route: 065
  2. CODEINE [Suspect]
     Active Substance: CODEINE
     Indication: Hypertension
     Route: 065
  3. CODEINE [Suspect]
     Active Substance: CODEINE
     Indication: Migraine
  4. INSULIN ASPART [Concomitant]
     Active Substance: INSULIN ASPART
     Indication: Type 2 diabetes mellitus
     Dosage: 30, 40 UNITS TWICE DAILY
     Route: 065
  5. INSULIN ASPART [Concomitant]
     Active Substance: INSULIN ASPART
     Dosage: 30, 32 UNITS TWICE DAILY
     Route: 065

REACTIONS (5)
  - Hypothalamic pituitary adrenal axis suppression [Not Recovered/Not Resolved]
  - Adrenal insufficiency [Not Recovered/Not Resolved]
  - Hypoglycaemia [Recovered/Resolved]
  - Lethargy [Recovered/Resolved]
  - Product use in unapproved indication [Unknown]
